FAERS Safety Report 23689304 (Version 3)
Quarter: 2024Q2

REPORT INFORMATION
  Report Type: Report from Study
  Country: TR (occurrence: TR)
  Receive Date: 20240330
  Receipt Date: 20240622
  Transmission Date: 20240716
  Serious: Yes (Death, Hospitalization)
  Sender: FDA-Public Use
  Company Number: TR-JNJFOC-20240370522

PATIENT
  Age: 42 Year
  Sex: Female
  Weight: 75 kg

DRUGS (5)
  1. DARZALEX [Suspect]
     Active Substance: DARATUMUMAB
     Indication: Plasma cell myeloma
     Route: 058
     Dates: start: 20220927
  2. ELRANATAMAB [Suspect]
     Active Substance: ELRANATAMAB
     Indication: Plasma cell myeloma
     Dosage: FIRST REGIMEN
     Route: 058
     Dates: start: 20220911
  3. ELRANATAMAB [Suspect]
     Active Substance: ELRANATAMAB
     Dosage: SECOND REGIMEN
     Route: 058
     Dates: start: 20220915
  4. ELRANATAMAB [Suspect]
     Active Substance: ELRANATAMAB
     Dosage: THIRD REGIMEN
     Route: 058
     Dates: start: 20220920
  5. ELRANATAMAB [Suspect]
     Active Substance: ELRANATAMAB
     Dosage: FOURTH REGIMEN
     Route: 058
     Dates: start: 20220927

REACTIONS (2)
  - Plasma cell myeloma [Fatal]
  - Anorectal infection [Not Recovered/Not Resolved]

NARRATIVE: CASE EVENT DATE: 20221010
